FAERS Safety Report 7513082-5 (Version None)
Quarter: 2011Q2

REPORT INFORMATION
  Report Type: 
  Country: None (occurrence: None)
  Receive Date: 20110531
  Receipt Date: 20110526
  Transmission Date: 20111010
  Serious: Yes (Disabling, Other)
  Sender: FDA-Public Use
  Company Number: US-PFIZER INC-2011115020

PATIENT
  Sex: Male

DRUGS (1)
  1. LYRICA [Suspect]
     Dosage: UNK
     Route: 048

REACTIONS (4)
  - DYSPNOEA [None]
  - URINARY RETENTION [None]
  - GENERALISED OEDEMA [None]
  - WEIGHT INCREASED [None]
